FAERS Safety Report 9060084 (Version 1)
Quarter: 2013Q1

REPORT INFORMATION
  Report Type: Spontaneous
  Country: FR (occurrence: FR)
  Receive Date: 20130212
  Receipt Date: 20130212
  Transmission Date: 20140127
  Serious: Yes (Death, Hospitalization)
  Sender: FDA-Public Use
  Company Number: 2013SP001957

PATIENT
  Age: 65 Year
  Sex: Male

DRUGS (15)
  1. FLUOROURACIL [Suspect]
     Indication: EPIGLOTTIC CARCINOMA
     Route: 042
     Dates: start: 20120829, end: 20121012
  2. DOCETAXEL [Suspect]
     Indication: EPIGLOTTIC CARCINOMA
     Route: 042
     Dates: start: 20120829, end: 20121008
  3. CISPLATIN [Suspect]
     Indication: EPIGLOTTIC CARCINOMA
     Route: 042
     Dates: start: 20120829, end: 20121008
  4. PEGFILGRASTIM [Suspect]
     Indication: PRODUCT USED FOR UNKNOWN INDICATION
     Route: 058
     Dates: start: 20120903, end: 20121013
  5. PREDNISOLONE SODIUM METASULFOBENZOATE [Concomitant]
  6. METHYLPREDNISOLONE SODIUM SUCCINATE [Concomitant]
  7. APREPITANT [Concomitant]
  8. APREPITANT [Concomitant]
  9. ONDANSETRON HYDROCHLORIDE [Concomitant]
  10. ONDANSETRON HYDROCHLORIDE [Concomitant]
  11. ALPRAZOLAM [Concomitant]
  12. MACROGOL [Concomitant]
  13. FENTANYL [Concomitant]
  14. BROMAZEPAM [Concomitant]
  15. TRANEXAMIC ACID [Concomitant]

REACTIONS (2)
  - Pulmonary fibrosis [Fatal]
  - Respiratory distress [None]
